FAERS Safety Report 13470267 (Version 2)
Quarter: 2017Q3

REPORT INFORMATION
  Report Type: Spontaneous
  Country: US (occurrence: US)
  Receive Date: 20170423
  Receipt Date: 20170707
  Transmission Date: 20171127
  Serious: No
  Sender: FDA-Public Use
  Company Number: US-JNJFOC-20170421341

PATIENT
  Age: 83 Year
  Sex: Female

DRUGS (2)
  1. XARELTO [Suspect]
     Active Substance: RIVAROXABAN
     Indication: PRODUCT USED FOR UNKNOWN INDICATION
     Route: 048
     Dates: start: 20170414, end: 20170416
  2. THYROID [Concomitant]
     Active Substance: LEVOTHYROXINE\LIOTHYRONINE
     Indication: THYROID DISORDER
     Dosage: USING SINCE: 30 PLUS YEARS (LIFE TIME USE)
     Route: 065

REACTIONS (6)
  - Nervousness [Recovering/Resolving]
  - Muscular weakness [Recovering/Resolving]
  - Adverse drug reaction [Recovering/Resolving]
  - Acne [Unknown]
  - Dizziness [Recovering/Resolving]
  - Dyspnoea [Recovering/Resolving]

NARRATIVE: CASE EVENT DATE: 20170415
